FAERS Safety Report 12225210 (Version 1)
Quarter: 2016Q1

REPORT INFORMATION
  Report Type: Spontaneous
  Country: US (occurrence: US)
  Receive Date: 20160331
  Receipt Date: 20160331
  Transmission Date: 20160526
  Serious: Yes (Hospitalization)
  Sender: FDA-Public Use
  Company Number: US-TEVA-646814USA

PATIENT
  Age: 76 Year
  Sex: Male
  Weight: 72.64 kg

DRUGS (2)
  1. PROAIR HFA [Suspect]
     Active Substance: ALBUTEROL SULFATE
     Indication: PNEUMONIA
     Dosage: EVERY FOUR TO SIX HOURS AS NEEDED
     Route: 065
     Dates: start: 201602
  2. SPIRIVA [Concomitant]
     Active Substance: TIOTROPIUM BROMIDE MONOHYDRATE

REACTIONS (5)
  - Chronic obstructive pulmonary disease [Unknown]
  - Dyspnoea [Unknown]
  - Bronchitis [Unknown]
  - Secretion discharge [Unknown]
  - Product use issue [Unknown]

NARRATIVE: CASE EVENT DATE: 201602
